FAERS Safety Report 5668934-8 (Version None)
Quarter: 2008Q1

REPORT INFORMATION
  Report Type: 
  Country: None (occurrence: None)
  Receive Date: 20080317
  Receipt Date: 20080304
  Transmission Date: 20080703
  Serious: Yes (Other)
  Sender: FDA-Public Use
  Company Number: US-ROCHE-542471

PATIENT
  Age: 19 Year
  Sex: Male
  Weight: 69.4 kg

DRUGS (2)
  1. ACCUTANE [Suspect]
     Indication: ACNE
     Route: 065
     Dates: start: 20070901
  2. ACCUTANE [Suspect]
     Route: 065

REACTIONS (3)
  - ACNE [None]
  - BLADDER DISTENSION [None]
  - HAEMATURIA [None]
